FAERS Safety Report 15392721 (Version 1)
Quarter: 2018Q3

REPORT INFORMATION
  Report Type: Spontaneous
  Country: US (occurrence: US)
  Receive Date: 20180917
  Receipt Date: 20180917
  Transmission Date: 20181010
  Serious: Yes (Other)
  Sender: FDA-Public Use
  Company Number: US-UCBSA-2018041214

PATIENT
  Sex: Female

DRUGS (1)
  1. KEPPRA [Suspect]
     Active Substance: LEVETIRACETAM
     Indication: PRODUCT USED FOR UNKNOWN INDICATION
     Dosage: 1000MG (NOT SURE), 2X/DAY (BID)
     Dates: start: 2007, end: 2018

REACTIONS (5)
  - Seizure [Unknown]
  - High risk pregnancy [Recovered/Resolved]
  - Depression [Unknown]
  - Pregnancy [Unknown]
  - Drug ineffective [Unknown]
